FAERS Safety Report 18783210 (Version 1)
Quarter: 2021Q1

REPORT INFORMATION
  Report Type: Spontaneous
  Country: CA (occurrence: CA)
  Receive Date: 20210125
  Receipt Date: 20210125
  Transmission Date: 20210419
  Serious: Yes (Hospitalization, Other)
  Sender: FDA-Public Use
  Company Number: CA-JNJFOC-20210133052

PATIENT
  Age: 35 Year
  Sex: Female

DRUGS (3)
  1. PENTASA [Concomitant]
     Active Substance: MESALAMINE
  2. PREDNISONE. [Concomitant]
     Active Substance: PREDNISONE
  3. INFLIXIMAB, RECOMBINANT [Suspect]
     Active Substance: INFLIXIMAB
     Indication: COLITIS ULCERATIVE
     Route: 042

REACTIONS (10)
  - Asthenia [Unknown]
  - Abnormal behaviour [Unknown]
  - Feeding disorder [Unknown]
  - Mood swings [Unknown]
  - Pallor [Unknown]
  - Haematochezia [Unknown]
  - Nausea [Unknown]
  - Off label use [Unknown]
  - Inappropriate schedule of product administration [Unknown]
  - Lethargy [Unknown]
